FAERS Safety Report 11048627 (Version 1)
Quarter: 2015Q2

REPORT INFORMATION
  Report Type: Spontaneous
  Country: JP (occurrence: JP)
  Receive Date: 20150420
  Receipt Date: 20150420
  Transmission Date: 20150821
  Serious: Yes (Other)
  Sender: FDA-Public Use
  Company Number: JP-GLAXOSMITHKLINE-JP2015JPN051177

PATIENT
  Sex: Female

DRUGS (2)
  1. UNKNOWN DRUG [Concomitant]
     Active Substance: UNSPECIFIED INGREDIENT
     Dosage: UNK
  2. SERETIDE [Suspect]
     Active Substance: FLUTICASONE FUROATE\SALMETEROL XINAFOATE
     Dosage: UNK
     Route: 055
     Dates: start: 201504

REACTIONS (2)
  - Drug-induced liver injury [Unknown]
  - Hepatic function abnormal [Unknown]
